FAERS Safety Report 10631275 (Version 1)
Quarter: 2014Q4

REPORT INFORMATION
  Report Type: Spontaneous
  Country: US (occurrence: US)
  Receive Date: 20141205
  Receipt Date: 20141205
  Transmission Date: 20150529
  Serious: No
  Sender: FDA-Public Use
  Company Number: US-BRISTOL-MYERS SQUIBB COMPANY-21480033

PATIENT
  Age: 76 Year
  Sex: Female

DRUGS (2)
  1. IMIPRAMINE [Suspect]
     Active Substance: IMIPRAMINE
  2. ABILIFY [Suspect]
     Active Substance: ARIPIPRAZOLE
     Indication: DEPRESSION
     Route: 048

REACTIONS (10)
  - Vision blurred [Unknown]
  - Anger [Unknown]
  - Nervousness [Unknown]
  - Dyspnoea [Unknown]
  - Anxiety [Unknown]
  - Depressed mood [Unknown]
  - Crying [Unknown]
  - Apathy [Unknown]
  - Panic attack [Unknown]
  - Feeling abnormal [Unknown]

NARRATIVE: CASE EVENT DATE: 201406
